FAERS Safety Report 7767946-8 (Version None)
Quarter: 2011Q3

REPORT INFORMATION
  Report Type: 
  Country: None (occurrence: None)
  Receive Date: 20110922
  Receipt Date: 20100517
  Transmission Date: 20111222
  Serious: Yes (Other)
  Sender: FDA-Public Use
  Company Number: US-ASTRAZENECA-2007UW11582

PATIENT
  Age: 16029 Day
  Sex: Male
  Weight: 90.3 kg

DRUGS (5)
  1. FLOMAX [Concomitant]
     Dates: start: 20090401
  2. TRAMADOL HCL [Concomitant]
     Dates: start: 20060913
  3. SEROQUEL [Suspect]
     Route: 048
     Dates: start: 20060320, end: 20080310
  4. VYTORIN [Concomitant]
     Dosage: 10/40 1 DAILY
     Dates: start: 20060426
  5. ALLEGRA [Concomitant]
     Dates: start: 20060426

REACTIONS (2)
  - ERECTILE DYSFUNCTION [None]
  - TYPE 2 DIABETES MELLITUS [None]
